FAERS Safety Report 8331780-0 (Version None)
Quarter: 2012Q2

REPORT INFORMATION
  Report Type: 
  Country: None (occurrence: None)
  Receive Date: 20120502
  Receipt Date: 20120423
  Transmission Date: 20120825
  Serious: No
  Sender: FDA-Public Use
  Company Number: US-AMGEN-USASP2012025540

PATIENT
  Age: 69 Year
  Sex: Female

DRUGS (1)
  1. ENBREL [Suspect]
     Indication: RHEUMATOID ARTHRITIS
     Dosage: 50 MG, QWK
     Dates: start: 20070616

REACTIONS (7)
  - HEADACHE [None]
  - SINUSITIS [None]
  - PARANASAL SINUS HYPERSECRETION [None]
  - COUGH [None]
  - SINUS HEADACHE [None]
  - NASOPHARYNGITIS [None]
  - FATIGUE [None]
